FAERS Safety Report 4970949-X (Version None)
Quarter: 2006Q2

REPORT INFORMATION
  Report Type: 
  Country: None (occurrence: None)
  Receive Date: 20060411
  Receipt Date: 20060411
  Transmission Date: 20061013
  Serious: Yes (Other)
  Sender: FDA-Public Use
  Company Number: None

PATIENT
  Age: 26 Year
  Sex: Female
  Weight: 54 kg

DRUGS (1)
  1. ISOVUE-300 [Suspect]
     Indication: SPINAL MYELOGRAM
     Dosage: ONCE
     Dates: start: 20060314, end: 20060314

REACTIONS (3)
  - CONVULSION [None]
  - POSTICTAL STATE [None]
  - SOMNOLENCE [None]
